FAERS Safety Report 6381920-8 (Version None)
Quarter: 2009Q3

REPORT INFORMATION
  Report Type: 
  Country: None (occurrence: None)
  Receive Date: 20090930
  Receipt Date: 20090918
  Transmission Date: 20100115
  Serious: Yes (Hospitalization, Other)
  Sender: FDA-Public Use
  Company Number: DE-BAYER-200928880GPV

PATIENT
  Age: 69 Year
  Sex: Female
  Weight: 67 kg

DRUGS (18)
  1. SORAFENIB [Suspect]
     Indication: HEPATIC NEOPLASM MALIGNANT
     Dosage: TOTAL DAILY DOSE: 400 MG
     Route: 048
     Dates: start: 20090804, end: 20090815
  2. ERLOTINIB OR PLACEBO [Suspect]
     Indication: HEPATIC NEOPLASM MALIGNANT
     Dates: start: 20090812, end: 20090815
  3. ERLOTINIB OR PLACEBO [Suspect]
     Dates: start: 20090804, end: 20090812
  4. METOHEXAL [Concomitant]
     Indication: HYPERTENSION
     Route: 048
     Dates: start: 20080604
  5. AMLODIPINE [Concomitant]
     Indication: HYPERTENSION
     Route: 048
     Dates: start: 20080604
  6. ASPIRIN [Concomitant]
     Indication: HYPERTENSION
     Route: 048
     Dates: start: 20080604
  7. COAPROVEL [Concomitant]
     Indication: HYPERTENSION
     Dosage: AS USED: 300/25 MG
     Route: 048
     Dates: start: 20080604
  8. GLUCOBAY [Concomitant]
     Indication: TYPE 2 DIABETES MELLITUS
     Dosage: 50
     Route: 058
     Dates: start: 20080604
  9. GLUCOBAY [Concomitant]
     Dates: start: 20040101
  10. MOXODURA [Concomitant]
     Indication: HYPERTENSION
     Route: 048
     Dates: start: 20040101
  11. ONE ALPHA [Concomitant]
     Indication: RENAL FAILURE
     Dates: start: 20040101
  12. PROTAPHAN [Concomitant]
     Indication: TYPE 2 DIABETES MELLITUS
     Route: 058
     Dates: start: 20040101
  13. PANTOPRAZOLE SODIUM [Concomitant]
     Indication: HAEMATEMESIS
     Dates: start: 20090816
  14. SPIRONOLACTONE [Concomitant]
     Indication: OEDEMA
     Dates: start: 20090816
  15. LACTULOSE [Concomitant]
     Dosage: 4 MB
     Dates: start: 20090816
  16. DOCITON [Concomitant]
     Indication: HYPERTENSION
     Dates: start: 20090816
  17. KONAKION [Concomitant]
     Indication: VITAMIN K DEFICIENCY
     Dates: start: 20090816
  18. BELOC ZOK [Concomitant]
     Indication: HYPERTENSION
     Dates: start: 20090816

REACTIONS (4)
  - BLOOD BILIRUBIN INCREASED [None]
  - HEPATIC ENCEPHALOPATHY [None]
  - PALMAR-PLANTAR ERYTHRODYSAESTHESIA SYNDROME [None]
  - RASH [None]
